FAERS Safety Report 4395926-1 (Version None)
Quarter: 2004Q3

REPORT INFORMATION
  Report Type: 
  Country: None (occurrence: None)
  Receive Date: 20040713
  Receipt Date: 20040701
  Transmission Date: 20050211
  Serious: Yes (Hospitalization)
  Sender: FDA-Public Use
  Company Number: AT-MERCK-0407AUT00001

PATIENT
  Age: 78 Year
  Sex: Female

DRUGS (7)
  1. FOSAMAX [Suspect]
     Indication: OSTEOPOROSIS
     Route: 048
     Dates: start: 20040625, end: 20040625
  2. FOSAMAX [Suspect]
     Route: 048
     Dates: end: 20031201
  3. BISOPROLOL FUMARATE [Concomitant]
     Indication: CARDIAC FAILURE
     Route: 048
  4. LISINOPRIL [Concomitant]
     Indication: CARDIAC FAILURE
     Route: 048
  5. VIOXX [Concomitant]
     Indication: PAIN
     Route: 048
  6. THEOPHYLLINE [Concomitant]
     Indication: ASTHMA
     Route: 065
  7. TRAMADOL HYDROCHLORIDE [Concomitant]
     Route: 065

REACTIONS (6)
  - ANAPHYLACTIC REACTION [None]
  - ARTHRALGIA [None]
  - FALL [None]
  - ILEUS [None]
  - MYALGIA [None]
  - PYREXIA [None]
